FAERS Safety Report 10147420 (Version 1)
Quarter: 2014Q2

REPORT INFORMATION
  Report Type: Spontaneous
  Country: US (occurrence: US)
  Receive Date: 20140501
  Receipt Date: 20140501
  Transmission Date: 20141212
  Serious: Yes (Other)
  Sender: FDA-Public Use
  Company Number: US-TEVA-478202USA

PATIENT
  Sex: Male
  Weight: 74.91 kg

DRUGS (10)
  1. PROVIGIL [Suspect]
     Indication: SOMNOLENCE
     Dates: start: 2007
  2. PROZAC [Concomitant]
     Indication: OBSESSIVE-COMPULSIVE DISORDER
  3. PROZAC [Concomitant]
     Indication: DEPRESSION
  4. WELLBUTRIN [Concomitant]
     Indication: OBSESSIVE-COMPULSIVE DISORDER
  5. WELLBUTRIN [Concomitant]
     Indication: DEPRESSION
  6. BUSPAR [Concomitant]
     Indication: OBSESSIVE-COMPULSIVE DISORDER
  7. BUSPAR [Concomitant]
     Indication: DEPRESSION
  8. TESTOSTERONE [Concomitant]
     Indication: BLOOD TESTOSTERONE DECREASED
     Route: 030
  9. DALMANE [Concomitant]
     Indication: INSOMNIA
     Route: 030
  10. PRAVASTATIN [Concomitant]
     Indication: BLOOD CHOLESTEROL INCREASED
     Route: 030

REACTIONS (8)
  - Choking [Not Recovered/Not Resolved]
  - Sleep apnoea syndrome [Not Recovered/Not Resolved]
  - Insomnia [Not Recovered/Not Resolved]
  - Nervousness [Recovered/Resolved]
  - Insomnia [Not Recovered/Not Resolved]
  - Dyspnoea [Not Recovered/Not Resolved]
  - Insomnia [Not Recovered/Not Resolved]
  - Off label use [Not Recovered/Not Resolved]
